FAERS Safety Report 6240329-8 (Version None)
Quarter: 2009Q2

REPORT INFORMATION
  Report Type: 
  Country: None (occurrence: None)
  Receive Date: 20090623
  Receipt Date: 20080729
  Transmission Date: 20091009
  Serious: No
  Sender: FDA-Public Use
  Company Number: US-ASTRAZENECA-2008UW14793

PATIENT
  Age: 50 Year
  Sex: Female
  Weight: 90.7 kg

DRUGS (17)
  1. PULMICORT RESPULES [Suspect]
     Indication: LUNG DISORDER
     Dosage: 0.5 MG
     Route: 055
  2. OXYGEN [Concomitant]
  3. NORCO [Concomitant]
  4. KEPPRA [Concomitant]
  5. FERROUS SULFATE TAB [Concomitant]
  6. VITAMIN D [Concomitant]
  7. POTASSIUM CHLORIDE [Concomitant]
  8. CALCIUM WITH VITAMIN D [Concomitant]
  9. MAGNESIUM SULFATE [Concomitant]
  10. WATER PILL [Concomitant]
  11. FAMOTIDINE [Concomitant]
  12. LASIX [Concomitant]
  13. ASCORBIC ACID [Concomitant]
  14. DOCUSATE [Concomitant]
  15. BACLOFEN [Concomitant]
  16. SPIRONOLACTONE [Concomitant]
  17. XANAX [Concomitant]

REACTIONS (4)
  - LACRIMATION INCREASED [None]
  - RHINORRHOEA [None]
  - THROAT IRRITATION [None]
  - VOMITING [None]
